FAERS Safety Report 5028597-1 (Version None)
Quarter: 2006Q2

REPORT INFORMATION
  Report Type: 
  Country: None (occurrence: None)
  Receive Date: 20060615
  Receipt Date: 20060615
  Transmission Date: 20061013
  Serious: Yes (Hospitalization)
  Sender: FDA-Public Use
  Company Number: None

PATIENT
  Age: 70 Year
  Sex: Male
  Weight: 106 kg

DRUGS (12)
  1. HEPARIN [Suspect]
     Indication: ACUTE MYOCARDIAL INFARCTION
  2. INTEGRILIN [Suspect]
     Indication: ACUTE MYOCARDIAL INFARCTION
  3. ASPIRIN [Suspect]
     Dosage: 325 QD
  4. PLAVIX [Suspect]
     Dosage: 300MG X1
  5. ZOCOR [Concomitant]
  6. MAALOX FAST BLOCKER [Concomitant]
  7. ENALAPRIL [Concomitant]
  8. HUMALOG MIX 75/25 [Concomitant]
  9. POTASSIUM [Concomitant]
  10. GLUCOVANCE [Concomitant]
  11. HYDROCHLOROTHIAZIDE [Concomitant]
  12. MOM [Concomitant]

REACTIONS (3)
  - HAEMATOCRIT DECREASED [None]
  - HAEMOGLOBIN DECREASED [None]
  - MELAENA [None]
